FAERS Safety Report 8264857-9 (Version None)
Quarter: 2012Q2

REPORT INFORMATION
  Report Type: 
  Country: None (occurrence: None)
  Receive Date: 20120406
  Receipt Date: 20120326
  Transmission Date: 20120825
  Serious: Yes (Death, Hospitalization)
  Sender: FDA-Public Use
  Company Number: JP-JNJFOC-20120212395

PATIENT
  Age: 34 Year
  Sex: Male
  Weight: 53 kg

DRUGS (11)
  1. REMICADE [Suspect]
     Route: 042
     Dates: start: 20120113
  2. REMICADE [Suspect]
     Route: 042
     Dates: start: 20090324
  3. REMICADE [Suspect]
     Route: 042
     Dates: start: 20091205
  4. IMURAN [Suspect]
     Route: 048
     Dates: start: 20090316
  5. REMICADE [Suspect]
     Indication: CROHN'S DISEASE
     Route: 042
     Dates: start: 20111118
  6. REMICADE [Suspect]
     Route: 042
     Dates: start: 20081115
  7. REMICADE [Suspect]
     Route: 042
     Dates: start: 20080409
  8. REMICADE [Suspect]
     Route: 042
     Dates: start: 20080227
  9. IMURAN [Suspect]
     Indication: THERAPEUTIC RESPONSE DECREASED
     Route: 048
     Dates: start: 20110304, end: 20120208
  10. REMICADE [Suspect]
     Route: 042
     Dates: start: 20090905
  11. REMICADE [Suspect]
     Route: 042
     Dates: start: 20090613

REACTIONS (2)
  - ANTIBIOTIC RESISTANT STAPHYLOCOCCUS TEST [None]
  - LYMPHOMA [None]
